FAERS Safety Report 5097570-X (Version None)
Quarter: 2006Q3

REPORT INFORMATION
  Report Type: 
  Country: None (occurrence: None)
  Receive Date: 20060901
  Receipt Date: 20060823
  Transmission Date: 20061208
  Serious: Yes (Life-Threatening, Disabling)
  Sender: FDA-Public Use
  Company Number: 2006099940

PATIENT
  Age: 55 Year
  Sex: Male

DRUGS (6)
  1. LIPITOR [Suspect]
     Indication: HYPERLIPIDAEMIA
     Dosage: 5 MG (5 MG, 1 IN 1 D), ORAL
     Route: 048
     Dates: start: 20060712, end: 20060727
  2. OMEPRAZOLE [Suspect]
     Indication: GASTRITIS
     Dosage: 10 MG (10 MG, 1 IN 1 D), ORAL
     Route: 048
     Dates: start: 20060710, end: 20060727
  3. CARVEDILOL [Suspect]
     Indication: ACUTE MYOCARDIAL INFARCTION
     Dosage: 2.5 MG (2.5 MG, 1 IN 1 D), ORAL
     Route: 048
     Dates: start: 20060712, end: 20060727
  4. LOSARTAN POTASSIUM [Suspect]
     Indication: ACUTE MYOCARDIAL INFARCTION
     Dosage: 12.5 MG (12.5 MG, 1 IN 1 D), ORAL
     Route: 048
     Dates: start: 20060712, end: 20060727
  5. ASPIRIN [Concomitant]
  6. TICLOPIDINE HCL [Concomitant]

REACTIONS (4)
  - ANGINA PECTORIS [None]
  - HYPERLIPIDAEMIA [None]
  - PLATELET COUNT INCREASED [None]
  - THROMBOSIS IN DEVICE [None]
